FAERS Safety Report 4282035-5 (Version None)
Quarter: 2004Q1

REPORT INFORMATION
  Report Type: 
  Country: None (occurrence: None)
  Receive Date: 20040128
  Receipt Date: 20040116
  Transmission Date: 20041129
  Serious: Yes (Other)
  Sender: FDA-Public Use
  Company Number: 601#6#2004-00001

PATIENT
  Age: 45 Year
  Sex: Male

DRUGS (8)
  1. MOEXIPRIL HCL [Suspect]
     Indication: CARDIOMEGALY
     Dosage: 15 MG DAILY, ORAL
     Route: 048
     Dates: start: 20030213, end: 20030306
  2. MOEXIPRIL HCL [Suspect]
     Indication: VENTRICULAR HYPERTROPHY
     Dosage: 15 MG DAILY, ORAL
     Route: 048
     Dates: start: 20030213, end: 20030306
  3. MOEXIPRIL HCL [Suspect]
     Indication: CARDIOMEGALY
     Dosage: 15 MG DAILY, ORAL
     Route: 048
     Dates: start: 20030306, end: 20030422
  4. MOEXIPRIL HCL [Suspect]
     Indication: VENTRICULAR HYPERTROPHY
     Dosage: 15 MG DAILY, ORAL
     Route: 048
     Dates: start: 20030306, end: 20030422
  5. MOEXIPRIL HCL [Suspect]
     Indication: CARDIOMEGALY
     Dosage: 15 MG DAILY, ORAL
     Route: 048
     Dates: start: 20031002, end: 20040114
  6. MOEXIPRIL HCL [Suspect]
     Indication: VENTRICULAR HYPERTROPHY
     Dosage: 15 MG DAILY, ORAL
     Route: 048
     Dates: start: 20031002, end: 20040114
  7. HYDROCHLOROTHIAZIDE [Suspect]
     Dosage: SEE IMAGE
     Route: 048
     Dates: start: 20030306, end: 20030422
  8. HYDROCHLOROTHIAZIDE [Suspect]
     Dosage: SEE IMAGE
     Route: 048
     Dates: start: 20031002, end: 20040114

REACTIONS (2)
  - BLOOD POTASSIUM DECREASED [None]
  - SUPRAVENTRICULAR TACHYCARDIA [None]
